FAERS Safety Report 5401972-9 (Version None)
Quarter: 2007Q3

REPORT INFORMATION
  Report Type: 
  Country: None (occurrence: None)
  Receive Date: 20070727
  Receipt Date: 20070717
  Transmission Date: 20080115
  Serious: Yes (Hospitalization)
  Sender: FDA-Public Use
  Company Number: GXKR2007JP06175

PATIENT
  Age: 50 Year
  Sex: Male

DRUGS (6)
  1. PREDNISOLONE [Suspect]
     Indication: BEHCET'S SYNDROME
     Dosage: 7.5 MG, QD, ORAL
     Route: 048
  2. BETAMETHASONE [Suspect]
     Indication: BEHCET'S SYNDROME
     Dosage: TOPICAL
     Route: 061
  3. TRIAMCINOLONE [Suspect]
     Indication: UVEITIS
     Dosage: 12 MG, ONCE/SINGE, INTRAVITERAL IN
  4. ASPIRIN [Concomitant]
  5. COLISTIN (COLISTIN) [Concomitant]
  6. LEVOFLOXACIN [Concomitant]

REACTIONS (9)
  - EYELID OEDEMA [None]
  - INJECTION SITE DISCHARGE [None]
  - NOCARDIOSIS [None]
  - ORBITAL INFECTION [None]
  - POST PROCEDURAL INFECTION [None]
  - RETINITIS [None]
  - UVEITIS [None]
  - VISION BLURRED [None]
  - VISUAL ACUITY REDUCED [None]
